FAERS Safety Report 12830131 (Version 1)
Quarter: 2016Q4

REPORT INFORMATION
  Report Type: Spontaneous
  Country: US (occurrence: US)
  Receive Date: 20161007
  Receipt Date: 20161007
  Transmission Date: 20170207
  Serious: No
  Sender: FDA-Public Use
  Company Number: US-SA-2016SA100181

PATIENT
  Age: 68 Year
  Sex: Female

DRUGS (3)
  1. AUBAGIO [Suspect]
     Active Substance: TERIFLUNOMIDE
     Indication: MULTIPLE SCLEROSIS
     Route: 048
     Dates: start: 20160303
  2. PROGESTERONE. [Concomitant]
     Active Substance: PROGESTERONE
  3. SOTALOL. [Concomitant]
     Active Substance: SOTALOL

REACTIONS (1)
  - Decreased appetite [Unknown]
